FAERS Safety Report 6470755-3 (Version None)
Quarter: 2009Q4

REPORT INFORMATION
  Report Type: 
  Country: None (occurrence: None)
  Receive Date: 20091203
  Receipt Date: 20091130
  Transmission Date: 20100525
  Serious: Yes (Death, Hospitalization)
  Sender: FDA-Public Use
  Company Number: B0602229A

PATIENT
  Sex: Male
  Weight: 114 kg

DRUGS (7)
  1. ARIXTRA [Suspect]
     Indication: ATRIAL FIBRILLATION
     Dosage: 5MG PER DAY
     Route: 058
     Dates: start: 20080901
  2. REMICADE [Suspect]
     Indication: PSORIATIC ARTHROPATHY
     Route: 042
     Dates: start: 20070921, end: 20081125
  3. METHOTREXATE [Suspect]
     Indication: PSORIATIC ARTHROPATHY
     Dosage: 15MG WEEKLY
     Route: 048
     Dates: end: 20090124
  4. IRBESARTAN [Suspect]
     Dosage: 300MG PER DAY
     Route: 048
  5. LASIX [Suspect]
     Dosage: 20MG PER DAY
     Route: 048
  6. ISOPTIN SR [Suspect]
     Dosage: 240MG PER DAY
  7. PRAVASTATIN SODIUM [Suspect]
     Dosage: 20MG PER DAY
     Route: 048

REACTIONS (12)
  - ACUTE RESPIRATORY DISTRESS SYNDROME [None]
  - DYSPNOEA [None]
  - HAEMATOMA [None]
  - HEART RATE IRREGULAR [None]
  - HYPOXIA [None]
  - INCORRECT DRUG ADMINISTRATION DURATION [None]
  - MULTI-ORGAN FAILURE [None]
  - OFF LABEL USE [None]
  - PNEUMONIA LEGIONELLA [None]
  - PRODUCTIVE COUGH [None]
  - PYREXIA [None]
  - SPUTUM PURULENT [None]
